FAERS Safety Report 7672622-6 (Version None)
Quarter: 2011Q3

REPORT INFORMATION
  Report Type: 
  Country: None (occurrence: None)
  Receive Date: 20110809
  Receipt Date: 20110726
  Transmission Date: 20111222
  Serious: Yes (Hospitalization, Other)
  Sender: FDA-Public Use
  Company Number: US-TYCO HEALTHCARE/MALLINCKRODT-T201101496

PATIENT
  Sex: Male
  Weight: 110.66 kg

DRUGS (8)
  1. OPTIMARK [Suspect]
     Indication: NUCLEAR MAGNETIC RESONANCE IMAGING
     Dosage: 15 ML, SINGLE
     Dates: start: 20070117, end: 20070117
  2. ACIPHEX [Concomitant]
     Dosage: 20 MG, QD
  3. LEVITRA [Concomitant]
     Dosage: 20 MG, QD
  4. OPTIMARK [Suspect]
  5. LISINOPRIL [Concomitant]
     Dosage: 20 MG, QD
  6. MULTIPLE VITAMINS [Concomitant]
  7. CRESTOR [Concomitant]
     Dosage: 5 MG, QD
  8. IBUPROFEN [Concomitant]
     Dosage: 600 MG, QD

REACTIONS (17)
  - HYPONATRAEMIA [None]
  - ACUTE MYOCARDIAL INFARCTION [None]
  - CHEST PAIN [None]
  - CONTRAST MEDIA ALLERGY [None]
  - CARDIAC FAILURE CONGESTIVE [None]
  - PLEURAL EFFUSION [None]
  - CORONARY ARTERY DISEASE [None]
  - HYPOALBUMINAEMIA [None]
  - HYPERBILIRUBINAEMIA [None]
  - NAUSEA [None]
  - VENTRICULAR TACHYCARDIA [None]
  - DEPRESSION [None]
  - VOMITING [None]
  - CELLULITIS [None]
  - ASTHENIA [None]
  - BACTERIAL DISEASE CARRIER [None]
  - GALLBLADDER POLYP [None]
